FAERS Safety Report 9891729 (Version 1)
Quarter: 2014Q1

REPORT INFORMATION
  Report Type: Spontaneous
  Country: GB (occurrence: GB)
  Receive Date: 20140212
  Receipt Date: 20140212
  Transmission Date: 20141002
  Serious: Yes (Other)
  Sender: FDA-Public Use
  Company Number: PHFR2014GB001362

PATIENT
  Sex: Male

DRUGS (1)
  1. ZOMETA [Suspect]
     Dosage: UNK UKN, UNK

REACTIONS (5)
  - Neuropathy peripheral [Unknown]
  - Pollakiuria [Unknown]
  - Insomnia [Unknown]
  - Back pain [Unknown]
  - Fatigue [Unknown]
